FAERS Safety Report 5854608-7 (Version None)
Quarter: 2008Q3

REPORT INFORMATION
  Report Type: 
  Country: None (occurrence: None)
  Receive Date: 20080822
  Receipt Date: 20071207
  Transmission Date: 20090109
  Serious: No
  Sender: FDA-Public Use
  Company Number: US-ABBOTT-07P-163-0422263-00

PATIENT
  Sex: Female
  Weight: 131.8 kg

DRUGS (12)
  1. SYNTHROID [Suspect]
     Indication: HYPOTHYROIDISM
     Route: 048
     Dates: start: 19990101, end: 20050101
  2. SYNTHROID [Suspect]
     Route: 048
     Dates: start: 20050101, end: 20050101
  3. SYNTHROID [Suspect]
     Route: 048
     Dates: start: 20050101, end: 20050101
  4. SYNTHROID [Suspect]
     Route: 048
     Dates: start: 20050101, end: 20050101
  5. SYNTHROID [Suspect]
     Route: 048
     Dates: start: 20050101, end: 20050101
  6. SYNTHROID [Suspect]
     Route: 048
     Dates: start: 20050101, end: 20070401
  7. SYNTHROID [Suspect]
     Route: 048
     Dates: start: 20070401, end: 20070801
  8. SYNTHROID [Suspect]
     Route: 048
     Dates: start: 20070801
  9. THYROID TAB [Suspect]
     Indication: HYPOTHYROIDISM
     Route: 048
  10. LEVOTHYROXINE SODIUM [Suspect]
     Indication: HYPOTHYROIDISM
     Route: 048
  11. LEVOTHYROXINE SODIUM [Suspect]
     Indication: HYPOTHYROIDISM
     Route: 048
     Dates: start: 20051018
  12. OLMESARTAN MEDOXOMIL [Concomitant]
     Indication: BLOOD PRESSURE
     Dates: start: 20050101

REACTIONS (6)
  - ARTHRALGIA [None]
  - ARTHROPATHY [None]
  - BLOOD CREATINE PHOSPHOKINASE INCREASED [None]
  - MYALGIA [None]
  - SENSORY DISTURBANCE [None]
  - THYROGLOBULIN INCREASED [None]
